FAERS Safety Report 7992733-5 (Version None)
Quarter: 2011Q4

REPORT INFORMATION
  Report Type: 
  Country: None (occurrence: None)
  Receive Date: 20111219
  Receipt Date: 20110805
  Transmission Date: 20120403
  Serious: No
  Sender: FDA-Public Use
  Company Number: US-ASTRAZENECA-2011SE47180

PATIENT
  Age: 49 Year
  Sex: Female
  Weight: 108.9 kg

DRUGS (2)
  1. LISINOPRIL AND HYDROCHLOROTHIAZIDE [Concomitant]
     Indication: HYPERTENSION
  2. CRESTOR [Suspect]
     Indication: HYPERCHOLESTEROLAEMIA
     Route: 048
     Dates: start: 20010101

REACTIONS (3)
  - WEIGHT INCREASED [None]
  - MUSCLE SPASMS [None]
  - GAIT DISTURBANCE [None]
